FAERS Safety Report 6060398-8 (Version None)
Quarter: 2009Q1

REPORT INFORMATION
  Report Type: 
  Country: None (occurrence: None)
  Receive Date: 20090127
  Receipt Date: 20090127
  Transmission Date: 20090719
  Serious: Yes (Life-Threatening, Hospitalization, Other)
  Sender: FDA-Public Use
  Company Number: None

PATIENT
  Age: 56 Year
  Sex: Male
  Weight: 77 kg

DRUGS (1)
  1. WARFARIN SODIUM [Suspect]
     Dosage: 5MG DAILY PO
     Route: 048

REACTIONS (2)
  - HAEMORRHAGIC STROKE [None]
  - INTERNATIONAL NORMALISED RATIO INCREASED [None]
